FAERS Safety Report 21365637 (Version 1)
Quarter: 2022Q3

REPORT INFORMATION
  Report Type: Spontaneous
  Country: US (occurrence: US)
  Receive Date: 20220922
  Receipt Date: 20220922
  Transmission Date: 20221027
  Serious: Yes (Hospitalization)
  Sender: FDA-Public Use
  Company Number: US-MYLANLABS-2022M1095154

PATIENT
  Sex: Female

DRUGS (4)
  1. MAGNESIUM SULFATE [Suspect]
     Active Substance: MAGNESIUM SULFATE
     Indication: Ventricular tachycardia
     Dosage: UNK
     Route: 064
  2. MAGNESIUM SULFATE [Suspect]
     Active Substance: MAGNESIUM SULFATE
     Dosage: BOLUS
     Route: 065
  3. ESMOLOL [Suspect]
     Active Substance: ESMOLOL HYDROCHLORIDE
     Indication: Ventricular tachycardia
     Dosage: 25 MICROGRAM/KILOGRAM, QMINUTE
     Route: 065
  4. LIDOCAINE [Suspect]
     Active Substance: LIDOCAINE
     Indication: Ventricular tachycardia
     Dosage: 25 MICROGRAM/KILOGRAM, QMINUTE, BOLUS
     Route: 065

REACTIONS (2)
  - Drug ineffective [Unknown]
  - Foetal exposure during pregnancy [Unknown]
